FAERS Safety Report 4471924-4 (Version None)
Quarter: 2004Q3

REPORT INFORMATION
  Report Type: 
  Country: None (occurrence: None)
  Receive Date: 20040914
  Receipt Date: 20040929
  Transmission Date: 20050211
  Serious: Yes (Hospitalization)
  Sender: FDA-Public Use
  Company Number: E2004-03093

PATIENT
  Age: 2 Year
  Sex: Female

DRUGS (1)
  1. TUBERTEST (TUBERCULIN PPD (M) 5 TU) [Suspect]
     Indication: TUBERCULIN TEST
     Dates: start: 20040913

REACTIONS (1)
  - GRAND MAL CONVULSION [None]
